FAERS Safety Report 21296789 (Version 1)
Quarter: 2022Q3

REPORT INFORMATION
  Report Type: Spontaneous
  Country: US (occurrence: None)
  Receive Date: 20220902
  Receipt Date: 20220902
  Transmission Date: 20221027
  Serious: Yes (Hospitalization)
  Sender: FDA-Public Use
  Company Number: None

PATIENT
  Age: 78 Year
  Sex: Male

DRUGS (1)
  1. RIVAROXABAN [Suspect]
     Active Substance: RIVAROXABAN
     Indication: Atrial fibrillation
     Dates: start: 20201014

REACTIONS (6)
  - Haematemesis [None]
  - Blood loss anaemia [None]
  - Haemoglobin decreased [None]
  - Therapy interrupted [None]
  - Gastric ulcer [None]
  - Gastric haemorrhage [None]

NARRATIVE: CASE EVENT DATE: 20220415
